FAERS Safety Report 9944271 (Version 1)
Quarter: 2014Q1

REPORT INFORMATION
  Report Type: Report from Study
  Country: US (occurrence: US)
  Receive Date: 20140303
  Receipt Date: 20140303
  Transmission Date: 20141002
  Serious: No
  Sender: FDA-Public Use
  Company Number: US-ABBVIE-13P-163-1054285-00

PATIENT
  Sex: Male
  Weight: 69.01 kg

DRUGS (8)
  1. HUMIRA [Suspect]
     Indication: RHEUMATOID ARTHRITIS
     Dates: start: 2008, end: 2009
  2. ALPRAZOLAM [Concomitant]
     Indication: ANXIETY
  3. DICLOFENAC [Concomitant]
     Indication: PAIN
  4. DIOVAN [Concomitant]
     Indication: HYPERTENSION
  5. FOLIC ACID [Concomitant]
     Indication: VITAMIN SUPPLEMENTATION
  6. ASPIRIN [Concomitant]
     Indication: CARDIAC DISORDER
  7. METHOTREXATE [Concomitant]
     Indication: RHEUMATOID ARTHRITIS
  8. TRAMADOL [Concomitant]
     Indication: PAIN

REACTIONS (3)
  - Haematochezia [Recovered/Resolved]
  - Constipation [Recovered/Resolved]
  - Abdominal pain lower [Recovered/Resolved]
